FAERS Safety Report 25210961 (Version 1)
Quarter: 2025Q2

REPORT INFORMATION
  Report Type: Spontaneous
  Country: US (occurrence: US)
  Receive Date: 20250417
  Receipt Date: 20250417
  Transmission Date: 20250717
  Serious: No
  Sender: ELI LILLY AND COMPANY
  Company Number: US-ELI_LILLY_AND_COMPANY-US202504016116

PATIENT
  Age: 99 Year
  Sex: Male

DRUGS (1)
  1. BASAGLAR [Suspect]
     Active Substance: INSULIN GLARGINE
     Indication: Diabetes mellitus
     Dosage: 85 U, DAILY
     Route: 058

REACTIONS (4)
  - Blood glucose increased [Unknown]
  - Hyperhidrosis [Unknown]
  - Feeling hot [Unknown]
  - Blood glucose decreased [Unknown]
